FAERS Safety Report 13282236 (Version 2)
Quarter: 2017Q1

REPORT INFORMATION
  Report Type: Spontaneous
  Country: PL (occurrence: PL)
  Receive Date: 20170301
  Receipt Date: 20170323
  Transmission Date: 20170428
  Serious: Yes (Other)
  Sender: FDA-Public Use
  Company Number: PL-GLENMARK PHARMACEUTICALS-2017GMK026495

PATIENT

DRUGS (2)
  1. EZTOM, 50 MIKROGRAM?W/DAWK?, AEROZOL DO NOSA, ZAWIESINA [Suspect]
     Active Substance: MOMETASONE FUROATE
     Indication: RHINITIS
     Dosage: 1 ACTUATION, BID
     Route: 045
     Dates: start: 20161221, end: 20161222
  2. LORAFEN [Concomitant]
     Active Substance: LORAZEPAM
     Indication: HYPERSENSITIVITY
     Dosage: 5 MG, QD
     Route: 048

REACTIONS (8)
  - Loss of consciousness [Unknown]
  - Nasal oedema [Unknown]
  - Headache [Unknown]
  - Eye pain [Unknown]
  - Lacrimation increased [Unknown]
  - Throat tightness [Unknown]
  - Peripheral swelling [Unknown]
  - Swelling face [Unknown]

NARRATIVE: CASE EVENT DATE: 20161221
